FAERS Safety Report 4526769-3 (Version None)
Quarter: 2004Q4

REPORT INFORMATION
  Report Type: 
  Country: None (occurrence: None)
  Receive Date: 20041213
  Receipt Date: 20041203
  Transmission Date: 20050328
  Serious: Yes (Life-Threatening, Disabling)
  Sender: FDA-Public Use
  Company Number: 2004UW22287

PATIENT
  Age: 64 Year
  Sex: Male
  Weight: 66.2252 kg

DRUGS (5)
  1. CRESTOR [Suspect]
     Indication: CORONARY ARTERY DISEASE
     Dosage: 10 MG PO
     Route: 048
  2. CRESTOR [Suspect]
     Indication: HYPERLIPIDAEMIA
     Dosage: 10 MG PO
     Route: 048
  3. TOPROL-XL [Concomitant]
  4. PLAVIX [Concomitant]
  5. PREVACID [Concomitant]

REACTIONS (3)
  - HEPATIC ENZYME INCREASED [None]
  - HYPOAESTHESIA [None]
  - MYALGIA [None]
